FAERS Safety Report 9912653 (Version 1)
Quarter: 2014Q1

REPORT INFORMATION
  Report Type: Spontaneous
  Country: US (occurrence: None)
  Receive Date: 20140212
  Receipt Date: 20140212
  Transmission Date: 20141002
  Serious: Yes (Other)
  Sender: FDA-Public Use
  Company Number: IMP_07469_2014

PATIENT
  Age: 52 Year
  Sex: Female

DRUGS (5)
  1. DIVALPROEX [Suspect]
     Indication: PRODUCT USED FOR UNKNOWN INDICATION
     Dosage: INCREASED DOSE
  2. RISPERIDONE [Concomitant]
  3. LORAZEPAM [Concomitant]
  4. PHENYTOIN [Concomitant]
  5. HALOPERIDOL [Concomitant]

REACTIONS (9)
  - Drug ineffective [None]
  - Convulsion [None]
  - Suicidal ideation [None]
  - Pyrexia [None]
  - Alanine aminotransferase increased [None]
  - Aspartate aminotransferase increased [None]
  - Blood potassium decreased [None]
  - Hyperammonaemic encephalopathy [None]
  - Toxic encephalopathy [None]
